FAERS Safety Report 7210745-6 (Version None)
Quarter: 2010Q4

REPORT INFORMATION
  Report Type: 
  Country: None (occurrence: None)
  Receive Date: 20101227
  Receipt Date: 20101213
  Transmission Date: 20110411
  Serious: Yes (Death)
  Sender: FDA-Public Use
  Company Number: AE 2009-020

PATIENT
  Age: 77 Year
  Sex: Female

DRUGS (3)
  1. FAZACLO ODT [Suspect]
     Indication: SCHIZOPHRENIA
     Dosage: 150 MG DAILY PO
     Route: 048
     Dates: start: 20080530, end: 20081113
  2. ZOLOFT [Concomitant]
  3. REGLAN [Concomitant]

REACTIONS (1)
  - PANCREATIC CARCINOMA [None]
